FAERS Safety Report 23550635 (Version 3)
Quarter: 2024Q2

REPORT INFORMATION
  Report Type: Spontaneous
  Country: CA (occurrence: CA)
  Receive Date: 20240221
  Receipt Date: 20240625
  Transmission Date: 20240715
  Serious: Yes (Other)
  Sender: FDA-Public Use
  Company Number: CA-BAUSCH-BL-2024-002567

PATIENT
  Age: 22 Year
  Sex: Male

DRUGS (19)
  1. ULTRAVATE [Suspect]
     Active Substance: HALOBETASOL PROPIONATE
     Indication: Product used for unknown indication
     Route: 065
  2. ULTRAVATE [Suspect]
     Active Substance: HALOBETASOL PROPIONATE
     Route: 065
  3. BILASTINE [Suspect]
     Active Substance: BILASTINE
     Indication: Product used for unknown indication
     Route: 048
  4. BILASTINE [Suspect]
     Active Substance: BILASTINE
     Route: 048
  5. CLOBETASOL [Suspect]
     Active Substance: CLOBETASOL
     Indication: Product used for unknown indication
     Route: 065
  6. CLOBETASOL [Suspect]
     Active Substance: CLOBETASOL
     Dosage: CLOBETASOL PROPIONATE
     Route: 048
  7. HYDROCORTISONE VALERATE [Suspect]
     Active Substance: HYDROCORTISONE VALERATE
     Indication: Product used for unknown indication
     Route: 065
  8. HYDROCORTISONE VALERATE [Suspect]
     Active Substance: HYDROCORTISONE VALERATE
     Route: 065
  9. METHOTREXATE [Suspect]
     Active Substance: METHOTREXATE
     Indication: Product used for unknown indication
     Route: 065
  10. PROTOPIC [Suspect]
     Active Substance: TACROLIMUS
     Indication: Product used for unknown indication
     Dosage: OINTMENT TOPICAL
     Route: 065
  11. PROTOPIC [Suspect]
     Active Substance: TACROLIMUS
     Dosage: OINTMENT TOPICAL
     Route: 003
  12. RANITIDINE [Suspect]
     Active Substance: RANITIDINE
     Indication: Product used for unknown indication
     Route: 065
  13. RANITIDINE [Suspect]
     Active Substance: RANITIDINE
     Dosage: RANITIDINE HYDROCHLORIDE
     Route: 065
  14. RUPATADINE FUMARATE [Suspect]
     Active Substance: RUPATADINE FUMARATE
     Indication: Product used for unknown indication
     Route: 065
  15. RUPATADINE FUMARATE [Suspect]
     Active Substance: RUPATADINE FUMARATE
     Indication: Product used for unknown indication
     Route: 065
  16. BOTULINUM ANTITOXIN [Concomitant]
     Indication: Product used for unknown indication
  17. CONCERTA [Concomitant]
     Active Substance: METHYLPHENIDATE HYDROCHLORIDE
     Indication: Product used for unknown indication
     Dosage: TABLET (EXTENDED- RELEASE)
  18. SERTRALINE [Concomitant]
     Active Substance: SERTRALINE HYDROCHLORIDE
     Indication: Product used for unknown indication
  19. SERTRALINE [Concomitant]
     Active Substance: SERTRALINE HYDROCHLORIDE
     Dosage: SERTRALINE HYDROCHLORIDE

REACTIONS (2)
  - Condition aggravated [Unknown]
  - Drug ineffective [Unknown]
